FAERS Safety Report 7647660-X (Version None)
Quarter: 2011Q3

REPORT INFORMATION
  Report Type: 
  Country: None (occurrence: None)
  Receive Date: 20110801
  Receipt Date: 20110801
  Transmission Date: 20111222
  Serious: Yes (Death)
  Sender: FDA-Public Use
  Company Number: None

PATIENT

DRUGS (2)
  1. TPN [Concomitant]
  2. MEGACE [Suspect]

REACTIONS (5)
  - HEART RATE INCREASED [None]
  - PAIN [None]
  - WEIGHT DECREASED [None]
  - VEIN DISORDER [None]
  - OEDEMA PERIPHERAL [None]
